FAERS Safety Report 5735511-X (Version None)
Quarter: 2008Q2

REPORT INFORMATION
  Report Type: 
  Country: None (occurrence: None)
  Receive Date: 20080512
  Receipt Date: 20070808
  Transmission Date: 20081010
  Serious: Yes (Other)
  Sender: FDA-Public Use
  Company Number: US-PFIZER INC-2007067282

PATIENT
  Sex: Male
  Weight: 81.6 kg

DRUGS (6)
  1. GABAPENTIN [Suspect]
     Indication: DIABETIC NEUROPATHY
  2. GABAPENTIN [Suspect]
     Indication: PAIN
  3. INSULIN [Concomitant]
  4. PREDNISONE TAB [Concomitant]
  5. ALL OTHER THERAPEUTIC PRODUCTS [Concomitant]
  6. FISH OIL [Concomitant]

REACTIONS (2)
  - ACTIVITIES OF DAILY LIVING IMPAIRED [None]
  - SKIN LACERATION [None]
